FAERS Safety Report 16473297 (Version 1)
Quarter: 2019Q2

REPORT INFORMATION
  Report Type: Spontaneous
  Country: US (occurrence: US)
  Receive Date: 20190625
  Receipt Date: 20190625
  Transmission Date: 20190711
  Serious: Yes (Other)
  Sender: FDA-Public Use
  Company Number: US-COOPERSURGICAL, INC.-US-2019CPS001903

PATIENT
  Age: 22 Year
  Sex: Female

DRUGS (1)
  1. PARAGARD T 380A [Suspect]
     Active Substance: COPPER
     Indication: CONTRACEPTION
     Dosage: UNK
     Route: 015
     Dates: start: 201807

REACTIONS (6)
  - Drug ineffective [Unknown]
  - Emotional distress [Unknown]
  - Uterine haematoma [Unknown]
  - Pregnancy with contraceptive device [Unknown]
  - Pain [Unknown]
  - Device expulsion [Unknown]

NARRATIVE: CASE EVENT DATE: 201906
